FAERS Safety Report 18367465 (Version 3)
Quarter: 2020Q4

REPORT INFORMATION
  Report Type: Report from Study
  Country: CA (occurrence: CA)
  Receive Date: 20201009
  Receipt Date: 20201215
  Transmission Date: 20210114
  Serious: Yes (Hospitalization, Other)
  Sender: FDA-Public Use
  Company Number: CA-JNJFOC-20201004016

PATIENT
  Age: 52 Year
  Sex: Female
  Weight: 49 kg

DRUGS (2)
  1. STELARA [Suspect]
     Active Substance: USTEKINUMAB
     Route: 058
  2. STELARA [Suspect]
     Active Substance: USTEKINUMAB
     Indication: CROHN^S DISEASE
     Dosage: STELARA 15/09/2018 TO 20/06/2019 AND PATIENT HAS STOPPED THE TREATMENT AS SHE CONSIDERED THAT IT WAS
     Route: 042
     Dates: start: 20200925

REACTIONS (16)
  - Pain in extremity [Unknown]
  - Nausea [Unknown]
  - Haematochezia [Unknown]
  - Gait disturbance [Unknown]
  - Abdominal pain [Unknown]
  - Eating disorder [Unknown]
  - Peripheral swelling [Unknown]
  - Drug hypersensitivity [Unknown]
  - Fatigue [Unknown]
  - Neuropathy peripheral [Unknown]
  - Abdominal discomfort [Unknown]
  - Drug ineffective [Unknown]
  - Inflammation [Not Recovered/Not Resolved]
  - Discomfort [Unknown]
  - Urticaria [Recovering/Resolving]
  - Diarrhoea [Not Recovered/Not Resolved]

NARRATIVE: CASE EVENT DATE: 2020
